FAERS Safety Report 5614404-2 (Version None)
Quarter: 2008Q1

REPORT INFORMATION
  Report Type: 
  Country: None (occurrence: None)
  Receive Date: 20080205
  Receipt Date: 20080124
  Transmission Date: 20080703
  Serious: Yes (Hospitalization, Other)
  Sender: FDA-Public Use
  Company Number: US-PFIZER INC-2008008660

PATIENT
  Sex: Female
  Weight: 93 kg

DRUGS (2)
  1. NEURONTIN [Suspect]
     Indication: NEURALGIA
     Dates: start: 20070101, end: 20070101
  2. LYRICA [Suspect]
     Indication: NEURALGIA
     Dates: start: 20080101, end: 20080123

REACTIONS (7)
  - ABNORMAL DREAMS [None]
  - BLOOD IRON DECREASED [None]
  - DEPRESSION [None]
  - DISTURBANCE IN ATTENTION [None]
  - HALLUCINATION [None]
  - STRESS [None]
  - WEIGHT DECREASED [None]
